FAERS Safety Report 4336092-8 (Version None)
Quarter: 2004Q1

REPORT INFORMATION
  Report Type: 
  Country: None (occurrence: None)
  Receive Date: 20040331
  Receipt Date: 20030620
  Transmission Date: 20041129
  Serious: Yes (Hospitalization)
  Sender: FDA-Public Use
  Company Number: 20031649016US

PATIENT
  Sex: Female
  Weight: 66.7 kg

DRUGS (3)
  1. ADRIAMYCIN PFS [Suspect]
     Indication: BREAST CANCER FEMALE
     Dates: start: 20030515, end: 20030515
  2. NEOSAR [Suspect]
     Indication: BREAST CANCER FEMALE
     Dates: start: 20030515, end: 20030515
  3. NEULASTA [Suspect]
     Indication: NEUTROPENIA
     Dosage: 6 MG, SUBCUTANEOUS
     Route: 058
     Dates: start: 20030516, end: 20030516

REACTIONS (3)
  - NEUTROPENIA [None]
  - PYREXIA [None]
  - SEPSIS [None]
